FAERS Safety Report 20066641 (Version 1)
Quarter: 2021Q4

REPORT INFORMATION
  Report Type: Report from Study
  Country: PR (occurrence: PR)
  Receive Date: 20211115
  Receipt Date: 20211115
  Transmission Date: 20220303
  Serious: Yes (Other)
  Sender: FDA-Public Use
  Company Number: PR-ABBVIE-21K-131-4124126-00

PATIENT
  Age: 61 Year
  Sex: Female
  Weight: 64.922 kg

DRUGS (11)
  1. HUMIRA [Suspect]
     Active Substance: ADALIMUMAB
     Indication: Rheumatoid arthritis
     Route: 058
     Dates: start: 2017
  2. HUMIRA [Suspect]
     Active Substance: ADALIMUMAB
     Indication: Rheumatoid arthritis
     Dosage: 40MG/0.4ML
     Route: 058
  3. LYRICA [Concomitant]
     Active Substance: PREGABALIN
     Indication: Fibromyalgia
     Route: 048
     Dates: start: 2013
  4. SYNTHROID [Concomitant]
     Active Substance: LEVOTHYROXINE SODIUM
     Indication: Thyroid hormone replacement therapy
     Route: 048
  5. ENALAPRIL [Concomitant]
     Active Substance: ENALAPRIL
     Indication: Hypertension
     Route: 048
     Dates: start: 2011
  6. METFORMIN [Concomitant]
     Active Substance: METFORMIN HYDROCHLORIDE
     Indication: Diabetes mellitus
     Route: 048
     Dates: start: 2014
  7. CALCITRIOL [Concomitant]
     Active Substance: CALCITRIOL
     Indication: Product used for unknown indication
     Route: 048
     Dates: start: 1991
  8. ELAVIL [Concomitant]
     Active Substance: AMITRIPTYLINE HYDROCHLORIDE
     Indication: Facial nerve disorder
     Route: 048
     Dates: start: 2021
  9. GLIPIZIDE [Concomitant]
     Active Substance: GLIPIZIDE
     Indication: Blood glucose increased
     Route: 048
  10. TOZINAMERAN [Concomitant]
     Active Substance: TOZINAMERAN
     Indication: COVID-19
     Dosage: 1ST DOSE
     Route: 030
     Dates: start: 20210404, end: 20210404
  11. TOZINAMERAN [Concomitant]
     Active Substance: TOZINAMERAN
     Dosage: 2ND DOSE
     Route: 030
     Dates: start: 20210425, end: 20210425

REACTIONS (3)
  - Nerve compression [Not Recovered/Not Resolved]
  - Procedural pain [Not Recovered/Not Resolved]
  - Post procedural inflammation [Not Recovered/Not Resolved]

NARRATIVE: CASE EVENT DATE: 20210901
